FAERS Safety Report 11692673 (Version 1)
Quarter: 2015Q4

REPORT INFORMATION
  Report Type: Spontaneous
  Country: US (occurrence: None)
  Receive Date: 20151102
  Receipt Date: 20151102
  Transmission Date: 20160304
  Serious: Yes (Hospitalization)
  Sender: FDA-Public Use
  Company Number: None

PATIENT
  Age: 15 Year
  Sex: Male
  Weight: 67.8 kg

DRUGS (2)
  1. VINCRISTINE SULFATE. [Suspect]
     Active Substance: VINCRISTINE SULFATE
     Dates: end: 20140819
  2. METHOTREXATE [Suspect]
     Active Substance: METHOTREXATE
     Dates: end: 20150819

REACTIONS (7)
  - Pyrexia [None]
  - Erythema [None]
  - Granuloma [None]
  - Back pain [None]
  - Tuberculosis [None]
  - Neck pain [None]
  - Skin lesion [None]

NARRATIVE: CASE EVENT DATE: 20150929
